FAERS Safety Report 6894666-4 (Version None)
Quarter: 2010Q3

REPORT INFORMATION
  Report Type: 
  Country: None (occurrence: None)
  Receive Date: 20100802
  Receipt Date: 20100728
  Transmission Date: 20110219
  Serious: Yes (Hospitalization)
  Sender: FDA-Public Use
  Company Number: US-BRISTOL-MYERS SQUIBB COMPANY-15214547

PATIENT
  Age: 77 Year
  Sex: Male

DRUGS (13)
  1. ERBITUX [Suspect]
     Dosage: INTERRUPTED AND RESTARTED ON JUL10
     Dates: start: 20100708
  2. FLOMAX [Concomitant]
  3. DILTIAZEM HCL [Concomitant]
  4. VITAMIN D [Concomitant]
  5. CAPTOPRIL [Concomitant]
  6. ALLOPURINOL [Concomitant]
  7. ASPIRIN [Concomitant]
  8. DIGOXIN [Concomitant]
  9. METOPROLOL TARTRATE [Concomitant]
  10. SAW PALMETTO [Concomitant]
  11. MULTI-VITAMIN [Concomitant]
  12. IRON [Concomitant]
  13. LOVASTATIN [Concomitant]

REACTIONS (3)
  - DRY SKIN [None]
  - MENINGITIS [None]
  - RASH MACULAR [None]
